FAERS Safety Report 5801882-9 (Version None)
Quarter: 2008Q3

REPORT INFORMATION
  Report Type: 
  Country: None (occurrence: None)
  Receive Date: 20080707
  Receipt Date: 20080627
  Transmission Date: 20090109
  Serious: Yes (Death, Hospitalization)
  Sender: FDA-Public Use
  Company Number: DE-ALLERGAN-0804979US

PATIENT
  Sex: Female
  Weight: 18 kg

DRUGS (5)
  1. BOTOX [Suspect]
     Indication: CEREBRAL PALSY
     Dosage: 200 UNITS, SINGLE
     Route: 030
     Dates: start: 20070615, end: 20070615
  2. BOTOX [Suspect]
     Indication: MUSCLE SPASTICITY
     Dosage: 200 UNITS, SINGLE
     Route: 030
     Dates: start: 20070330, end: 20070330
  3. BOTOX [Suspect]
     Dosage: 200 UNITS, SINGLE
     Route: 030
     Dates: start: 20061211, end: 20061211
  4. BOTOX [Suspect]
     Dosage: 200 UNITS, SINGLE
     Route: 030
     Dates: start: 20060824, end: 20060824
  5. BOTOX [Suspect]
     Dosage: 200 UNITS, SINGLE
     Route: 030
     Dates: start: 20060502, end: 20060502

REACTIONS (12)
  - CARDIAC ARREST [None]
  - CYANOSIS [None]
  - DEATH [None]
  - DEHYDRATION [None]
  - HYPERGLYCAEMIA [None]
  - METABOLIC DISORDER [None]
  - MUSCLE SPASMS [None]
  - MUSCLE SPASTICITY [None]
  - RESPIRATORY ARREST [None]
  - RESPIRATORY DISORDER [None]
  - SOMNOLENCE [None]
  - UNRESPONSIVE TO STIMULI [None]
